FAERS Safety Report 9743129 (Version 1)
Quarter: 2013Q4

REPORT INFORMATION
  Report Type: Spontaneous
  Country: US (occurrence: US)
  Receive Date: 20131210
  Receipt Date: 20131210
  Transmission Date: 20140711
  Serious: No
  Sender: FDA-Public Use
  Company Number: US-GILEAD-2009-0024939

PATIENT
  Sex: Male
  Weight: 76.8 kg

DRUGS (13)
  1. LETAIRIS [Suspect]
     Indication: PULMONARY ARTERIAL HYPERTENSION
     Route: 048
     Dates: start: 20091014
  2. LASIX [Concomitant]
  3. COUMADIN [Concomitant]
  4. GABAPENTIN [Concomitant]
  5. LIPITOR [Concomitant]
  6. MICARDIS [Concomitant]
  7. ANTARA [Concomitant]
  8. REVATIO [Concomitant]
  9. XANAX [Concomitant]
  10. UROXATRAL [Concomitant]
  11. PAXIL [Concomitant]
  12. K-DUR [Concomitant]
  13. VESICARE [Concomitant]

REACTIONS (2)
  - Arthralgia [Unknown]
  - Local swelling [Unknown]
